FAERS Safety Report 9804157 (Version 1)
Quarter: 2014Q1

REPORT INFORMATION
  Report Type: Spontaneous
  Country: US (occurrence: US)
  Receive Date: 20140108
  Receipt Date: 20140108
  Transmission Date: 20141002
  Serious: Yes (Other)
  Sender: FDA-Public Use
  Company Number: PHHY2013US154867

PATIENT
  Age: 59 Year
  Sex: Male

DRUGS (15)
  1. LIORESAL INTRATECAL [Suspect]
     Indication: MUSCLE SPASTICITY
     Dosage: 49.97 UG, DAILY
     Route: 037
  2. TIZANIDINE [Suspect]
     Dosage: UNK UKN, UNK
     Route: 048
  3. ALLOPURINOL [Suspect]
     Dosage: UNK UKN, UNK
     Route: 048
  4. GABAPENTIN [Suspect]
     Dosage: UNK UKN, UNK
     Route: 048
  5. GLIPIZIDE [Suspect]
     Dosage: UNK UKN, UNK
     Route: 048
  6. NAPROXEN [Suspect]
     Dosage: UNK UKN, UNK
     Route: 048
  7. LISINOPRIL [Suspect]
     Dosage: UNK UKN, UNK
     Route: 048
  8. FLUOXETINE [Suspect]
     Dosage: UNK UKN, UNK
     Route: 048
  9. MORPHINE [Suspect]
     Dosage: UNK UKN, UNK
     Route: 037
  10. ACTOS [Suspect]
     Dosage: UNK UKN, UNK
     Route: 048
  11. AGGRENOX [Suspect]
     Dosage: UNK UKN, UNK
     Route: 048
  12. BYETTA [Suspect]
     Dosage: UNK UKN, UNK
     Route: 048
  13. PRAVACHOL [Suspect]
     Dosage: UNK UKN, UNK
     Route: 048
  14. TRICOR [Suspect]
     Dosage: UNK UKN, UNK
     Route: 048
  15. FOLIC ACID [Suspect]
     Dosage: UNK UKN, UNK
     Route: 048

REACTIONS (2)
  - Hypertonia [Recovering/Resolving]
  - No therapeutic response [Recovering/Resolving]
